FAERS Safety Report 5593949-8 (Version None)
Quarter: 2008Q1

REPORT INFORMATION
  Report Type: 
  Country: None (occurrence: None)
  Receive Date: 20080114
  Receipt Date: 20071227
  Transmission Date: 20080703
  Serious: Yes (Hospitalization, Disabling)
  Sender: FDA-Public Use
  Company Number: DSA_31139_2008

PATIENT
  Age: 63 Year
  Sex: Male

DRUGS (12)
  1. CARDIZEM [Suspect]
     Indication: ANGINA PECTORIS
     Dosage: (60 MG QID ORAL), (60 MG BID ORAL)
     Route: 048
     Dates: start: 20020101, end: 20060101
  2. CARDIZEM [Suspect]
     Indication: ANGINA PECTORIS
     Dosage: (60 MG QID ORAL), (60 MG BID ORAL)
     Route: 048
     Dates: start: 20060101
  3. ARADOIS [Concomitant]
  4. MONOCORDIL [Concomitant]
  5. VASTAREL [Concomitant]
  6. FOLIC ACID [Concomitant]
  7. AAS [Concomitant]
  8. OMEPRAZOL /00661201/ [Concomitant]
  9. METHOTREXATE [Concomitant]
  10. SIMVASTATIN [Concomitant]
  11. FLUOXETINA [Concomitant]
  12. SOMALGIN /00009201/ [Concomitant]

REACTIONS (3)
  - ANGINA PECTORIS [None]
  - CONDITION AGGRAVATED [None]
  - PARKINSON'S DISEASE [None]
